FAERS Safety Report 4399697-4 (Version None)
Quarter: 2004Q3

REPORT INFORMATION
  Report Type: 
  Country: None (occurrence: None)
  Receive Date: 20040713
  Receipt Date: 20040629
  Transmission Date: 20050211
  Serious: Yes (Hospitalization)
  Sender: FDA-Public Use
  Company Number: US-JNJFOC-20040402950

PATIENT
  Age: 13 Year
  Sex: Female
  Weight: 42.1845 kg

DRUGS (1)
  1. REMICADE [Suspect]
     Indication: CROHN'S DISEASE
     Dosage: INTRAVENOUS
     Route: 042
     Dates: start: 20040317

REACTIONS (6)
  - CHILLS [None]
  - CONDITION AGGRAVATED [None]
  - CROHN'S DISEASE [None]
  - PALPITATIONS [None]
  - PYREXIA [None]
  - VIRAL INFECTION [None]
